FAERS Safety Report 6697274-3 (Version None)
Quarter: 2010Q2

REPORT INFORMATION
  Report Type: 
  Country: None (occurrence: None)
  Receive Date: 20100426
  Receipt Date: 20100414
  Transmission Date: 20101027
  Serious: Yes (Other)
  Sender: FDA-Public Use
  Company Number: US-ELI_LILLY_AND_COMPANY-US201004006020

PATIENT
  Sex: Female

DRUGS (9)
  1. CYMBALTA [Suspect]
     Indication: ANXIETY
     Dosage: 60 MG, DAILY (1/D)
     Dates: start: 20040101, end: 20070901
  2. CYMBALTA [Suspect]
     Dosage: 60 MG, DAILY (1/D)
     Dates: start: 20090101
  3. CYMBALTA [Suspect]
     Dosage: 30 MG, DAILY (1/D)
     Dates: start: 20090101, end: 20090101
  4. CYMBALTA [Suspect]
     Dosage: 20 MG, DAILY (1/D)
  5. CYMBALTA [Suspect]
     Dosage: 20 MG, DAILY (1/D)
  6. CYMBALTA [Suspect]
     Dosage: 20 MG, 2/D
  7. DULOXETINE HYDROCHLORIDE [Suspect]
     Indication: ANXIETY
     Dosage: 20 MG, UNK
     Dates: start: 20100412
  8. ADDERALL 30 [Concomitant]
  9. PRENATAL VITAMINS                  /01549301/ [Concomitant]

REACTIONS (10)
  - DRUG EXPOSURE DURING PREGNANCY [None]
  - DRUG INEFFECTIVE [None]
  - DRUG TOXICITY [None]
  - DRUG WITHDRAWAL SYNDROME [None]
  - IRRITABILITY [None]
  - PARAESTHESIA [None]
  - PREMATURE LABOUR [None]
  - RESTLESSNESS [None]
  - TREMOR [None]
  - URTICARIA [None]
